FAERS Safety Report 7284050-6 (Version None)
Quarter: 2011Q1

REPORT INFORMATION
  Report Type: 
  Country: None (occurrence: None)
  Receive Date: 20110209
  Receipt Date: 20110131
  Transmission Date: 20110831
  Serious: Yes (Hospitalization)
  Sender: FDA-Public Use
  Company Number: US-ASTRAZENECA-2011SE03388

PATIENT
  Age: 27385 Day
  Sex: Female

DRUGS (20)
  1. APIXABAN [Suspect]
     Indication: THROMBOSIS PROPHYLAXIS
     Route: 048
     Dates: start: 20101209, end: 20110106
  2. AEROVENT [Concomitant]
     Dates: start: 20101223, end: 20101229
  3. PREDNISONE [Concomitant]
     Dates: start: 20101214
  4. CARTIA XT [Concomitant]
     Dates: start: 20060907
  5. FLUTICASONE PROPIONATE [Concomitant]
     Dates: start: 20101223, end: 20101229
  6. PRILOSEC [Concomitant]
     Dates: start: 20101210
  7. AMLODIPINE [Concomitant]
     Dates: start: 20101215
  8. LACTULOSE [Concomitant]
     Dates: start: 20101224
  9. STATIN [Concomitant]
  10. DERALIN [Concomitant]
     Dates: start: 20101210
  11. AMLODIPINE [Concomitant]
     Dates: start: 20101224, end: 20101225
  12. BISOPROLOL FUMARATE [Concomitant]
     Dates: start: 20101230
  13. SINGULAIR [Concomitant]
     Dates: start: 20101215
  14. FUSID [Concomitant]
     Dates: start: 20100829, end: 20101224
  15. ETODOLAC [Suspect]
     Route: 065
  16. BISOPROLOL FUMARATE [Concomitant]
     Dates: start: 20101224
  17. ROSUVASTATIN [Suspect]
     Route: 048
  18. ENOXAPARIN SODIUM [Suspect]
     Indication: THROMBOSIS PROPHYLAXIS
     Route: 058
     Dates: start: 20101209, end: 20101215
  19. PLACEBO [Suspect]
     Indication: THROMBOSIS PROPHYLAXIS
     Route: 065
     Dates: start: 20101209, end: 20101201
  20. FOSALAN [Concomitant]
     Dates: start: 20050726

REACTIONS (4)
  - PERIPHERAL EMBOLISM [None]
  - CELLULITIS [None]
  - LIVER FUNCTION TEST ABNORMAL [None]
  - URINARY TRACT INFECTION BACTERIAL [None]
